FAERS Safety Report 12352898 (Version 2)
Quarter: 2017Q1

REPORT INFORMATION
  Report Type: Spontaneous
  Country: US (occurrence: US)
  Receive Date: 20160510
  Receipt Date: 20170110
  Transmission Date: 20170428
  Serious: No
  Sender: FDA-Public Use
  Company Number: US-ARBOR PHARMACEUTICALS, LLC-US-2016ARB000042

PATIENT

DRUGS (1)
  1. EDARBI [Suspect]
     Active Substance: AZILSARTAN KAMEDOXOMIL
     Indication: HYPERTENSION
     Dosage: 80 MG, QD
     Route: 048
     Dates: start: 2014

REACTIONS (1)
  - Incorrect product storage [Unknown]

NARRATIVE: CASE EVENT DATE: 2014
